FAERS Safety Report 8939381 (Version 1)
Quarter: 2012Q4

REPORT INFORMATION
  Report Type: 
  Country: IT (occurrence: IT)
  Receive Date: 20121203
  Receipt Date: 20121203
  Transmission Date: 20130627
  Serious: Yes (Other)
  Sender: FDA-Public Use
  Company Number: IT-ABBOTT-12P-083-1014715-00

PATIENT
  Age: 39 Year
  Sex: Female
  Weight: 80 kg

DRUGS (5)
  1. AKINETON [Suspect]
     Indication: PRODUCT USED FOR UNKNOWN INDICATION
     Dosage: 50 tablets
     Route: 048
     Dates: start: 20111111, end: 20111111
  2. INVEGA [Suspect]
     Indication: PRODUCT USED FOR UNKNOWN INDICATION
     Dosage: 28 tablets
     Route: 048
     Dates: start: 20121111, end: 20121111
  3. PROMAZINA [Suspect]
     Indication: PRODUCT USED FOR UNKNOWN INDICATION
     Dates: start: 20111111, end: 20111111
  4. TOLEP [Suspect]
     Indication: PRODUCT USED FOR UNKNOWN INDICATION
     Dosage: 50 tablets
     Dates: start: 20111111, end: 20111111
  5. CARBOLITHIUM [Suspect]
     Indication: PRODUCT USED FOR UNKNOWN INDICATION
     Dosage: 50 Capsules
     Dates: start: 20121111, end: 20121111

REACTIONS (3)
  - Intentional self-injury [Unknown]
  - Tachycardia [Unknown]
  - Sopor [Unknown]
